FAERS Safety Report 4261823-5 (Version None)
Quarter: 2004Q1

REPORT INFORMATION
  Report Type: 
  Country: None (occurrence: None)
  Receive Date: 20040102
  Receipt Date: 20031008
  Transmission Date: 20041129
  Serious: Yes (Death)
  Sender: FDA-Public Use
  Company Number: 200313016EU

PATIENT
  Age: 60 Year
  Sex: Male

DRUGS (2)
  1. DOCETAXEL [Suspect]
     Indication: BRONCHIAL CARCINOMA
     Route: 042
     Dates: start: 20030317, end: 20030428
  2. CARBOPLATIN [Suspect]
     Indication: BRONCHIAL CARCINOMA
     Route: 042
     Dates: start: 20030317, end: 20030428

REACTIONS (3)
  - CATHETER SITE HAEMORRHAGE [None]
  - POST PROCEDURAL HAEMORRHAGE [None]
  - SUTURE RUPTURE [None]
